FAERS Safety Report 7907944-4 (Version None)
Quarter: 2011Q4

REPORT INFORMATION
  Report Type: 
  Country: None (occurrence: None)
  Receive Date: 20111110
  Receipt Date: 20111108
  Transmission Date: 20120403
  Serious: Yes (Death, Hospitalization, Other)
  Sender: FDA-Public Use
  Company Number: US-AMGEN-USASP2011049965

PATIENT
  Age: 72 Year
  Sex: Female

DRUGS (9)
  1. ASPIRIN [Concomitant]
  2. IMMUNE GLOBULIN NOS [Concomitant]
     Indication: IDIOPATHIC THROMBOCYTOPENIC PURPURA
  3. ZETIA [Concomitant]
  4. METOPROLOL [Concomitant]
  5. NPLATE [Suspect]
     Indication: IDIOPATHIC THROMBOCYTOPENIC PURPURA
     Dosage: 600 MUG, UNK
     Dates: start: 20081003, end: 20091209
  6. CORTICOSTEROIDS [Concomitant]
     Indication: IDIOPATHIC THROMBOCYTOPENIC PURPURA
  7. TRUVADA [Concomitant]
  8. PLAVIX [Concomitant]
  9. KALETRA [Concomitant]

REACTIONS (7)
  - POST PROCEDURAL COMPLICATION [None]
  - SINUS BRADYCARDIA [None]
  - DEATH [None]
  - BUNDLE BRANCH BLOCK LEFT [None]
  - CORONARY ARTERY DISEASE [None]
  - DRUG INEFFECTIVE [None]
  - HOSPITALISATION [None]
